FAERS Safety Report 17139956 (Version 2)
Quarter: 2020Q1

REPORT INFORMATION
  Report Type: Report from Study
  Country: GB (occurrence: CO)
  Receive Date: 20191211
  Receipt Date: 20200318
  Transmission Date: 20200409
  Serious: Yes (Hospitalization, Other)
  Sender: FDA-Public Use
  Company Number: CO-ASTELLAS-2019US049139

PATIENT
  Sex: Female

DRUGS (2)
  1. AVASTIN [Suspect]
     Active Substance: BEVACIZUMAB
     Indication: PRODUCT USED FOR UNKNOWN INDICATION
     Dosage: UNK UNK, UNKNOWN FREQ.
     Route: 065
  2. ERLOTINIB [Suspect]
     Active Substance: ERLOTINIB
     Indication: PRODUCT USED FOR UNKNOWN INDICATION
     Dosage: UNK UNK, UNKNOWN FREQ.
     Route: 048

REACTIONS (17)
  - Contusion [Unknown]
  - Constipation [Unknown]
  - Diarrhoea [Unknown]
  - Acne [Unknown]
  - Underweight [Unknown]
  - Fractured ischium [Unknown]
  - Fracture pain [Recovering/Resolving]
  - Petechiae [Unknown]
  - Hypophagia [Recovering/Resolving]
  - Dysphagia [Unknown]
  - Dysstasia [Unknown]
  - Abdominal pain [Unknown]
  - Malaise [Unknown]
  - Drug ineffective [Unknown]
  - Gait disturbance [Unknown]
  - Speech disorder [Unknown]
  - Fall [Unknown]
